FAERS Safety Report 8712488 (Version 4)
Quarter: 2012Q4

REPORT INFORMATION
  Report Type: 
  Country: VE (occurrence: VE)
  Receive Date: 20120808
  Receipt Date: 20120908
  Transmission Date: 20130627
  Serious: Yes (Death, Hospitalization)
  Sender: FDA-Public Use
  Company Number: PHHY2012VE068072

PATIENT
  Sex: Female

DRUGS (5)
  1. ACLASTA [Suspect]
     Indication: OSTEOPOROSIS
     Dosage: 5 mg, yearly
     Route: 042
     Dates: start: 2009
  2. ACLASTA [Suspect]
     Dosage: 5 mg, yearly
     Route: 042
     Dates: start: 201204
  3. ANTICOAGULANTS [Concomitant]
     Dosage: UNK UKN, UNK
  4. ANTIDEPRESSANTS [Concomitant]
     Dosage: UNK UKN, UNK
  5. ARAVA [Concomitant]
     Dosage: UNK UKN, UNK

REACTIONS (1)
  - Myocardial infarction [Fatal]
